FAERS Safety Report 14000213 (Version 1)
Quarter: 2017Q3

REPORT INFORMATION
  Report Type: Spontaneous
  Country: GR (occurrence: GR)
  Receive Date: 20170922
  Receipt Date: 20170922
  Transmission Date: 20171128
  Serious: Yes (Other)
  Sender: FDA-Public Use
  Company Number: PHHY2017GR137756

PATIENT
  Sex: Female

DRUGS (1)
  1. GILENYA [Suspect]
     Active Substance: FINGOLIMOD HYDROCHLORIDE
     Indication: RELAPSING-REMITTING MULTIPLE SCLEROSIS
     Dosage: UNK
     Route: 065
     Dates: end: 201704

REACTIONS (4)
  - Lymphopenia [Unknown]
  - Multiple sclerosis relapse [Unknown]
  - Lymphocyte count abnormal [Unknown]
  - Movement disorder [Unknown]

NARRATIVE: CASE EVENT DATE: 201708
